FAERS Safety Report 25697411 (Version 2)
Quarter: 2025Q3

REPORT INFORMATION
  Report Type: Spontaneous
  Country: US (occurrence: US)
  Receive Date: 20250818
  Receipt Date: 20250821
  Transmission Date: 20251021
  Serious: Yes (Hospitalization)
  Sender: ELI LILLY AND COMPANY
  Company Number: US-ELI_LILLY_AND_COMPANY-US202508003736

PATIENT
  Age: 64 Year
  Sex: Female

DRUGS (1)
  1. REZVOGLAR KWIKPEN [Suspect]
     Active Substance: INSULIN GLARGINE-AGLR
     Indication: Type 2 diabetes mellitus
     Dosage: UNK UNK, TID
     Route: 058
     Dates: start: 20250729

REACTIONS (7)
  - Blood glucose increased [Unknown]
  - Stress [Unknown]
  - Fatigue [Unknown]
  - Inappropriate schedule of product administration [Unknown]
  - Injection site pain [Unknown]
  - Injection site haemorrhage [Unknown]
  - Injection site bruising [Unknown]
